FAERS Safety Report 18603505 (Version 1)
Quarter: 2020Q4

REPORT INFORMATION
  Report Type: Report from Study
  Country: None (occurrence: US)
  Receive Date: 20201210
  Receipt Date: 20201210
  Transmission Date: 20210114
  Serious: Yes (Other)
  Sender: FDA-Public Use
  Company Number: US-ABBVIE-20K-163-3643619-00

PATIENT
  Age: 55 Year
  Sex: Female

DRUGS (1)
  1. HUMIRA [Suspect]
     Active Substance: ADALIMUMAB
     Indication: RHEUMATOID ARTHRITIS
     Route: 058
     Dates: start: 202009

REACTIONS (16)
  - Illness [Recovered/Resolved]
  - Therapeutic response shortened [Unknown]
  - Joint swelling [Not Recovered/Not Resolved]
  - Crying [Recovered/Resolved]
  - Emotional disorder [Recovered/Resolved]
  - Headache [Unknown]
  - Joint stiffness [Not Recovered/Not Resolved]
  - Muscle spasms [Not Recovered/Not Resolved]
  - Sjogren^s syndrome [Unknown]
  - Pain [Unknown]
  - Systemic lupus erythematosus [Unknown]
  - Autoimmune thyroiditis [Unknown]
  - Fatigue [Unknown]
  - Discomfort [Unknown]
  - Malaise [Unknown]
  - Arthralgia [Not Recovered/Not Resolved]

NARRATIVE: CASE EVENT DATE: 2020
